FAERS Safety Report 7424668-0 (Version None)
Quarter: 2011Q2

REPORT INFORMATION
  Report Type: 
  Country: None (occurrence: None)
  Receive Date: 20110419
  Receipt Date: 20110407
  Transmission Date: 20111010
  Serious: Yes (Other)
  Sender: FDA-Public Use
  Company Number: US-MYLANLABS-2011S1007264

PATIENT
  Sex: Male

DRUGS (1)
  1. AMNESTEEM [Suspect]
     Indication: ACNE
     Route: 048
     Dates: start: 20100801, end: 20110301

REACTIONS (1)
  - LYMPHOMA [None]
